FAERS Safety Report 10178674 (Version 2)
Quarter: 2014Q2

REPORT INFORMATION
  Report Type: Report from Study
  Country: IL (occurrence: IL)
  Receive Date: 20140519
  Receipt Date: 20140629
  Transmission Date: 20141212
  Serious: Yes (Hospitalization)
  Sender: FDA-Public Use
  Company Number: IL-TEVA-481608ISR

PATIENT
  Age: 11 Year
  Sex: Female
  Weight: 60 kg

DRUGS (3)
  1. COPAXONE [Suspect]
     Indication: RETT^S DISORDER
     Route: 058
  2. LEVETIRACETAM [Concomitant]
  3. SULTHIAME [Concomitant]

REACTIONS (2)
  - Anaphylactic reaction [Recovered/Resolved]
  - Convulsion [Recovered/Resolved]
